FAERS Safety Report 9769033 (Version 1)
Quarter: 2013Q4

REPORT INFORMATION
  Report Type: Spontaneous
  Country: US (occurrence: None)
  Receive Date: 20131217
  Receipt Date: 20131217
  Transmission Date: 20140711
  Serious: No
  Sender: FDA-Public Use
  Company Number: None

PATIENT
  Age: 66 Year
  Sex: Male
  Weight: 69.85 kg

DRUGS (3)
  1. TAMSULOSIN [Suspect]
     Indication: BENIGN PROSTATIC HYPERPLASIA
     Route: 048
     Dates: start: 20111111
  2. GLYBURIDE [Concomitant]
  3. METFORMIN [Concomitant]

REACTIONS (2)
  - Therapeutic response decreased [None]
  - Product substitution issue [None]
